FAERS Safety Report 11896532 (Version 1)
Quarter: 2016Q1

REPORT INFORMATION
  Report Type: Spontaneous
  Country: GB (occurrence: GB)
  Receive Date: 20160107
  Receipt Date: 20160107
  Transmission Date: 20160526
  Serious: Yes (Other)
  Sender: FDA-Public Use
  Company Number: GB-FRESENIUS KABI-FK201600032

PATIENT
  Age: 58 Year
  Sex: Female

DRUGS (1)
  1. PROPOFOL 1% (MANUFACTURER UNKNOWN) [Suspect]
     Active Substance: PROPOFOL
     Indication: GENERAL ANAESTHESIA
     Route: 065

REACTIONS (2)
  - Lactic acidosis [Recovering/Resolving]
  - Propofol infusion syndrome [Recovering/Resolving]
